FAERS Safety Report 10190482 (Version 1)
Quarter: 2014Q2

REPORT INFORMATION
  Report Type: Spontaneous
  Country: US (occurrence: US)
  Receive Date: 20140522
  Receipt Date: 20140522
  Transmission Date: 20141212
  Serious: Yes (Other)
  Sender: FDA-Public Use
  Company Number: US-SANOFI-AVENTIS-2013SA083543

PATIENT
  Sex: Male

DRUGS (10)
  1. OXALIPLATIN [Suspect]
     Indication: COLORECTAL CANCER METASTATIC
     Route: 065
  2. OXALIPLATIN [Suspect]
     Indication: METASTASES TO LIVER
     Route: 065
  3. IRINOTECAN HYDROCHLORIDE [Suspect]
     Indication: COLORECTAL CANCER METASTATIC
     Route: 065
  4. IRINOTECAN HYDROCHLORIDE [Suspect]
     Indication: METASTASES TO LIVER
     Route: 065
  5. 5-FU [Suspect]
     Indication: COLORECTAL CANCER METASTATIC
     Route: 065
  6. 5-FU [Suspect]
     Indication: METASTASES TO LIVER
     Route: 065
  7. FOLINIC ACID [Suspect]
     Indication: COLORECTAL CANCER METASTATIC
     Route: 065
  8. FOLINIC ACID [Suspect]
     Indication: METASTASES TO LIVER
     Route: 065
  9. CETUXIMAB [Suspect]
     Indication: COLORECTAL CANCER METASTATIC
     Route: 065
  10. CETUXIMAB [Suspect]
     Indication: METASTASES TO LIVER
     Route: 065

REACTIONS (1)
  - Disease progression [Unknown]
